FAERS Safety Report 17087148 (Version 2)
Quarter: 2019Q4

REPORT INFORMATION
  Report Type: Report from Study
  Country: CH (occurrence: CH)
  Receive Date: 20191128
  Receipt Date: 20191223
  Transmission Date: 20200122
  Serious: No
  Sender: FDA-Public Use
  Company Number: CH-BEH-2017083613

PATIENT

DRUGS (32)
  1. HIZENTRA [Suspect]
     Active Substance: HUMAN IMMUNOGLOBULIN G
     Dosage: 10 G / 50 ML, UNK
     Route: 065
     Dates: start: 20171007, end: 20171007
  2. HIZENTRA [Suspect]
     Active Substance: HUMAN IMMUNOGLOBULIN G
     Dosage: 10 G / 50 ML, UNK
     Route: 065
     Dates: start: 20171110, end: 20171110
  3. HIZENTRA [Suspect]
     Active Substance: HUMAN IMMUNOGLOBULIN G
     Dosage: 10 G / 50 ML, UNK
     Route: 065
     Dates: start: 20171125, end: 20171125
  4. HIZENTRA [Suspect]
     Active Substance: HUMAN IMMUNOGLOBULIN G
     Dosage: 10 G / 50 ML, UNK
     Route: 065
     Dates: start: 20171212, end: 20171212
  5. HIZENTRA [Suspect]
     Active Substance: HUMAN IMMUNOGLOBULIN G
     Dosage: 10 G / 50 ML, UNK
     Route: 065
     Dates: start: 20171024, end: 20171024
  6. HIZENTRA [Suspect]
     Active Substance: HUMAN IMMUNOGLOBULIN G
     Dosage: 10 G / 50 ML, UNK
     Route: 065
     Dates: start: 20171108, end: 20171108
  7. HIZENTRA [Suspect]
     Active Substance: HUMAN IMMUNOGLOBULIN G
     Dosage: 10 G / 50 ML, UNK
     Route: 065
     Dates: start: 20171205, end: 20171205
  8. HIZENTRA [Suspect]
     Active Substance: HUMAN IMMUNOGLOBULIN G
     Dosage: 10 G / 50 ML, UNK
     Route: 065
     Dates: start: 20171215, end: 20171215
  9. HIZENTRA [Suspect]
     Active Substance: HUMAN IMMUNOGLOBULIN G
     Dosage: 10 G / 50 ML, UNK
     Route: 065
     Dates: start: 20171202, end: 20171202
  10. HIZENTRA [Suspect]
     Active Substance: HUMAN IMMUNOGLOBULIN G
     Dosage: 10 G / 50 ML, UNK
     Route: 065
     Dates: start: 20180103, end: 20180103
  11. HIZENTRA [Suspect]
     Active Substance: HUMAN IMMUNOGLOBULIN G
     Dosage: 10 G / 50 ML, UNK
     Route: 065
     Dates: start: 20180106, end: 20180106
  12. HIZENTRA [Suspect]
     Active Substance: HUMAN IMMUNOGLOBULIN G
     Dosage: 10 G / 50 ML, UNK
     Route: 065
     Dates: start: 20180110, end: 20180110
  13. HIZENTRA [Suspect]
     Active Substance: HUMAN IMMUNOGLOBULIN G
     Dosage: 10 G / 50 ML, UNK
     Route: 065
     Dates: start: 20180113, end: 20180113
  14. HIZENTRA [Suspect]
     Active Substance: HUMAN IMMUNOGLOBULIN G
     Dosage: 50 MILLILITER, BIW, (2 SITES OF INJECTION)
     Route: 065
     Dates: end: 20180113
  15. HIZENTRA [Suspect]
     Active Substance: HUMAN IMMUNOGLOBULIN G
     Indication: PRODUCT USED FOR UNKNOWN INDICATION
     Dosage: 50 ML, BIW 2.SITES OF INJ.
     Route: 065
  16. HIZENTRA [Suspect]
     Active Substance: HUMAN IMMUNOGLOBULIN G
     Dosage: 10 G / 50 ML, UNK
     Route: 065
     Dates: start: 20171004, end: 20171004
  17. HIZENTRA [Suspect]
     Active Substance: HUMAN IMMUNOGLOBULIN G
     Dosage: 10 G / 50 ML, UNK
     Route: 065
     Dates: start: 20171017, end: 20171017
  18. HIZENTRA [Suspect]
     Active Substance: HUMAN IMMUNOGLOBULIN G
     Dosage: 10 G / 50 ML, UNK
     Route: 065
     Dates: start: 20171031, end: 20171031
  19. HIZENTRA [Suspect]
     Active Substance: HUMAN IMMUNOGLOBULIN G
     Dosage: 10 G / 50 ML, UNK
     Route: 065
     Dates: start: 20171223, end: 20171223
  20. HIZENTRA [Suspect]
     Active Substance: HUMAN IMMUNOGLOBULIN G
     Dosage: 10 G / 50 ML, UNK
     Route: 065
     Dates: start: 20171226, end: 20171226
  21. HIZENTRA [Suspect]
     Active Substance: HUMAN IMMUNOGLOBULIN G
     Dosage: 10 G / 50 ML, UNK
     Route: 065
     Dates: start: 20171027, end: 20171027
  22. HIZENTRA [Suspect]
     Active Substance: HUMAN IMMUNOGLOBULIN G
     Dosage: 10 G / 50 ML, UNK
     Route: 065
     Dates: start: 20171013, end: 20171013
  23. HIZENTRA [Suspect]
     Active Substance: HUMAN IMMUNOGLOBULIN G
     Dosage: 10 G / 50 ML, UNK
     Route: 065
     Dates: start: 20171104, end: 20171104
  24. HIZENTRA [Suspect]
     Active Substance: HUMAN IMMUNOGLOBULIN G
     Dosage: 10 G / 50 ML, UNK
     Route: 065
     Dates: start: 20171122, end: 20171122
  25. HIZENTRA [Suspect]
     Active Substance: HUMAN IMMUNOGLOBULIN G
     Dosage: 10 G / 50 ML, UNK
     Route: 065
     Dates: start: 20171208, end: 20171208
  26. HIZENTRA [Suspect]
     Active Substance: HUMAN IMMUNOGLOBULIN G
     Dosage: 10 G / 50 ML, UNK
     Route: 065
     Dates: start: 20170929, end: 20170929
  27. HIZENTRA [Suspect]
     Active Substance: HUMAN IMMUNOGLOBULIN G
     Dosage: 10 G / 50 ML, UNK
     Route: 065
     Dates: start: 20171115, end: 20171115
  28. HIZENTRA [Suspect]
     Active Substance: HUMAN IMMUNOGLOBULIN G
     Dosage: 10 G / 50 ML, UNK
     Route: 065
     Dates: start: 20171128, end: 20171128
  29. HIZENTRA [Suspect]
     Active Substance: HUMAN IMMUNOGLOBULIN G
     Dosage: 10 G / 50 ML, UNK
     Route: 065
     Dates: start: 20171230, end: 20171230
  30. HIZENTRA [Suspect]
     Active Substance: HUMAN IMMUNOGLOBULIN G
     Dosage: 10 G / 50 ML, UNK
     Route: 065
     Dates: start: 20171010, end: 20171010
  31. HIZENTRA [Suspect]
     Active Substance: HUMAN IMMUNOGLOBULIN G
     Dosage: 10 G / 50 ML, UNK
     Route: 065
     Dates: start: 20171118, end: 20171118
  32. HIZENTRA [Suspect]
     Active Substance: HUMAN IMMUNOGLOBULIN G
     Dosage: 10 G / 50 ML, UNK
     Route: 065
     Dates: start: 20171219, end: 20171219

REACTIONS (26)
  - Cough [Recovering/Resolving]
  - Headache [Unknown]
  - Skin reaction [Unknown]
  - Injection site swelling [Recovered/Resolved]
  - Haemoptysis [Recovering/Resolving]
  - Headache [Unknown]
  - Fatigue [Unknown]
  - Injection site pain [Recovered/Resolved]
  - Hypertension [Unknown]
  - Pain [Unknown]
  - No adverse event [Unknown]
  - Abdominal tenderness [Unknown]
  - Cough [Unknown]
  - Product dose omission [Unknown]
  - Infusion site pain [Unknown]
  - Fatigue [Recovering/Resolving]
  - Secretion discharge [Unknown]
  - Abdominal pain upper [Unknown]
  - Skin discolouration [Unknown]
  - Infusion site extravasation [Unknown]
  - Abdominal tenderness [Recovering/Resolving]
  - Erythema [Recovering/Resolving]
  - Pain [Recovering/Resolving]
  - Injection site pain [Unknown]
  - Infusion site haematoma [Unknown]
  - Injection site induration [Unknown]

NARRATIVE: CASE EVENT DATE: 201904
